FAERS Safety Report 8386902-2 (Version None)
Quarter: 2012Q2

REPORT INFORMATION
  Report Type: 
  Country: None (occurrence: None)
  Receive Date: 20120523
  Receipt Date: 20120514
  Transmission Date: 20120825
  Serious: Yes (Death, Hospitalization)
  Sender: FDA-Public Use
  Company Number: 134083

PATIENT
  Age: 79 Year
  Sex: Male

DRUGS (1)
  1. CIPROFLOXACIN [Suspect]
     Indication: BRONCHOPNEUMONIA
     Dosage: 500MG TWICE DAILY

REACTIONS (3)
  - RESPIRATORY FAILURE [None]
  - CARDIAC FAILURE [None]
  - INTERSTITIAL LUNG DISEASE [None]
